FAERS Safety Report 13523451 (Version 1)
Quarter: 2017Q2

REPORT INFORMATION
  Report Type: Spontaneous
  Country: US (occurrence: US)
  Receive Date: 20170508
  Receipt Date: 20170508
  Transmission Date: 20170830
  Serious: No
  Sender: FDA-Public Use
  Company Number: US-VIFOR (INTERNATIONAL) INC.-VIT-2017-03861

PATIENT
  Age: 84 Year
  Sex: Female

DRUGS (21)
  1. AVAPRO [Concomitant]
     Active Substance: IRBESARTAN
  2. LIDODERM [Concomitant]
     Active Substance: LIDOCAINE
  3. TOCOPHEROL [Concomitant]
     Active Substance: TOCOPHEROL
  4. PLAVIX [Concomitant]
     Active Substance: CLOPIDOGREL BISULFATE
  5. COLCRYS [Concomitant]
     Active Substance: COLCHICINE
  6. DEMADEX [Concomitant]
     Active Substance: TORSEMIDE
  7. METANX [Concomitant]
     Active Substance: LEVOMEFOLATE CALCIUM\METHYLCOBALAMIN\PYRIDOXAL PHOSPHATE ANHYDROUS
  8. PROCRIT [Concomitant]
     Active Substance: ERYTHROPOIETIN
  9. TRAZODONE HYDROCHLORIDE. [Concomitant]
     Active Substance: TRAZODONE HYDROCHLORIDE
  10. XALATAN [Concomitant]
     Active Substance: LATANOPROST
  11. FEOSOL BIFERA [Concomitant]
  12. FOLIC ACID. [Concomitant]
     Active Substance: FOLIC ACID
  13. ULORIC [Concomitant]
     Active Substance: FEBUXOSTAT
  14. TRAMADOL HYDROCHLORIDE. [Concomitant]
     Active Substance: TRAMADOL HYDROCHLORIDE
  15. COREG [Concomitant]
     Active Substance: CARVEDILOL
  16. LANOXIN [Concomitant]
     Active Substance: DIGOXIN
  17. NEXIUM [Concomitant]
     Active Substance: ESOMEPRAZOLE MAGNESIUM
  18. XANAX [Concomitant]
     Active Substance: ALPRAZOLAM
  19. VELTASSA [Suspect]
     Active Substance: PATIROMER
     Indication: HYPERKALAEMIA
     Route: 048
     Dates: start: 20160513
  20. AMLODIPINE BESILATE [Concomitant]
     Active Substance: AMLODIPINE BESYLATE
  21. COLECALCIFEROL [Concomitant]
     Active Substance: CHOLECALCIFEROL

REACTIONS (2)
  - Speech disorder [Unknown]
  - Viral upper respiratory tract infection [Unknown]

NARRATIVE: CASE EVENT DATE: 20170407
